FAERS Safety Report 15173265 (Version 5)
Quarter: 2019Q1

REPORT INFORMATION
  Report Type: Spontaneous
  Country: PL (occurrence: PL)
  Receive Date: 20180720
  Receipt Date: 20190221
  Transmission Date: 20190417
  Serious: Yes (Hospitalization, Other)
  Sender: FDA-Public Use
  Company Number: PL-MYLANLABS-2018M1044285

PATIENT
  Age: 17 Year
  Sex: Female

DRUGS (13)
  1. DICLOFENAC [Suspect]
     Active Substance: DICLOFENAC
     Indication: ILIUM FRACTURE
     Dosage: 50 MG, UNK, X 1-2 A DAY
     Route: 065
  2. DICLOFENAC [Interacting]
     Active Substance: DICLOFENAC
     Dosage: 50 MILLIGRAM, BID
  3. PARACETAMOL [Interacting]
     Active Substance: ACETAMINOPHEN
     Indication: INJURY
  4. KETONAL                            /00321701/ [Interacting]
     Active Substance: KETOPROFEN
     Indication: BACK PAIN
  5. DICLOFENAC [Interacting]
     Active Substance: DICLOFENAC
     Indication: PAIN
     Dosage: 100 MG, QD
     Route: 065
  6. KETOPROFEN. [Interacting]
     Active Substance: KETOPROFEN
     Indication: INJURY
     Dosage: 100 MG, BID
     Route: 065
  7. PARACETAMOL [Interacting]
     Active Substance: ACETAMINOPHEN
     Indication: BACK PAIN
  8. DICLOFENAC [Interacting]
     Active Substance: DICLOFENAC
     Indication: BACK PAIN
     Dosage: AS NECESSARY
     Route: 065
  9. KETOPROFEN. [Interacting]
     Active Substance: KETOPROFEN
     Indication: BACK PAIN
     Dosage: UNK
  10. PARACETAMOL [Interacting]
     Active Substance: ACETAMINOPHEN
     Indication: ILIUM FRACTURE
     Dosage: 500 MG X 3 A DAY
     Route: 048
  11. KETONAL                            /00321701/ [Interacting]
     Active Substance: KETOPROFEN
     Indication: ILIUM FRACTURE
     Dosage: 100 MG X 2 A DAY
  12. KETONAL                            /00321701/ [Interacting]
     Active Substance: KETOPROFEN
     Indication: PAIN
  13. PARACETAMOL [Interacting]
     Active Substance: ACETAMINOPHEN
     Indication: PAIN

REACTIONS (14)
  - Asthenia [Recovering/Resolving]
  - Pyrexia [Recovering/Resolving]
  - Staphylococcal sepsis [Recovering/Resolving]
  - Nausea [Recovering/Resolving]
  - Dry mouth [Recovering/Resolving]
  - Skin turgor decreased [Recovering/Resolving]
  - Condition aggravated [Recovering/Resolving]
  - Pallor [Recovering/Resolving]
  - Renal impairment [Recovering/Resolving]
  - Acute kidney injury [Recovering/Resolving]
  - Tenderness [Recovering/Resolving]
  - Drug interaction [Unknown]
  - Respiratory rate increased [Recovering/Resolving]
  - Chromaturia [Recovering/Resolving]
